FAERS Safety Report 7673266-2 (Version None)
Quarter: 2011Q3

REPORT INFORMATION
  Report Type: 
  Country: None (occurrence: None)
  Receive Date: 20110804
  Receipt Date: 20110720
  Transmission Date: 20111222
  Serious: Yes (Hospitalization)
  Sender: FDA-Public Use
  Company Number: 2011MA009189

PATIENT
  Age: 18 Month
  Sex: Female

DRUGS (2)
  1. PREDNISONE [Suspect]
     Indication: HAEMANGIOMA
     Dosage: 4 MG/KG, QD;
  2. PROPRANOLOL HCL [Suspect]
     Indication: HAEMANGIOMA
     Dosage: 2 MG/KG,QD;

REACTIONS (6)
  - HYPERTENSION [None]
  - DEPRESSED LEVEL OF CONSCIOUSNESS [None]
  - AGITATION [None]
  - HYPOGLYCAEMIA [None]
  - BLOOD CORTISOL DECREASED [None]
  - CUSHINGOID [None]
